FAERS Safety Report 9270248 (Version 1)
Quarter: 2013Q2

REPORT INFORMATION
  Report Type: Spontaneous
  Country: US (occurrence: US)
  Receive Date: 20130503
  Receipt Date: 20130503
  Transmission Date: 20140414
  Serious: No
  Sender: FDA-Public Use
  Company Number: US-PFIZER INC-2013137957

PATIENT
  Age: 77 Year
  Sex: Female
  Weight: 81.18 kg

DRUGS (1)
  1. GABAPENTIN [Suspect]
     Indication: NEURITIS
     Dosage: 300 MG, SINGLE
     Route: 048
     Dates: start: 20130430, end: 20130430

REACTIONS (1)
  - Drug intolerance [Unknown]
